FAERS Safety Report 23016194 (Version 1)
Quarter: 2023Q4

REPORT INFORMATION
  Report Type: Spontaneous
  Country: US (occurrence: US)
  Receive Date: 20231002
  Receipt Date: 20231002
  Transmission Date: 20240109
  Serious: No
  Sender: FDA-Public Use
  Company Number: US-HARMONY BIOSCIENCES-2023HMY00695

PATIENT
  Age: 23 Year
  Sex: Female

DRUGS (2)
  1. WAKIX [Suspect]
     Active Substance: PITOLISANT HYDROCHLORIDE
     Indication: Narcolepsy
     Dosage: LOWER DOSE, TITRATED UP
     Dates: start: 2023, end: 2023
  2. WAKIX [Suspect]
     Active Substance: PITOLISANT HYDROCHLORIDE
     Dosage: HIGHER DOSE
     Dates: start: 2023

REACTIONS (3)
  - Abnormal dreams [Recovering/Resolving]
  - Sleep paralysis [Recovering/Resolving]
  - Nervousness [Recovering/Resolving]

NARRATIVE: CASE EVENT DATE: 20230101
